FAERS Safety Report 20561848 (Version 1)
Quarter: 2022Q1

REPORT INFORMATION
  Report Type: Spontaneous
  Country: US (occurrence: None)
  Receive Date: 20220305
  Receipt Date: 20220305
  Transmission Date: 20220424
  Serious: Yes (Other)
  Sender: FDA-Public Use
  Company Number: None

PATIENT
  Age: 55 Year
  Sex: Male

DRUGS (1)
  1. EYLEA [Suspect]
     Active Substance: AFLIBERCEPT
     Indication: Diabetic retinopathy
     Route: 047
     Dates: start: 20220223

REACTIONS (4)
  - Headache [None]
  - Dizziness [None]
  - Vitreous floaters [None]
  - Visual impairment [None]

NARRATIVE: CASE EVENT DATE: 20220223
